FAERS Safety Report 10332894 (Version 1)
Quarter: 2014Q3

REPORT INFORMATION
  Report Type: Report from Study
  Country: US (occurrence: US)
  Receive Date: 20140722
  Receipt Date: 20140722
  Transmission Date: 20150326
  Serious: Yes (Hospitalization)
  Sender: FDA-Public Use
  Company Number: US-ACTELION-A-US2014-102499

PATIENT
  Age: 62 Year
  Sex: Female

DRUGS (1)
  1. VENTAVIS [Suspect]
     Active Substance: ILOPROST
     Indication: COR PULMONALE CHRONIC
     Dosage: 5 MCG, 6-9X/D
     Route: 055
     Dates: start: 20121127

REACTIONS (2)
  - Pulmonary arterial hypertension [Unknown]
  - Arthropathy [Unknown]
